FAERS Safety Report 24935152 (Version 2)
Quarter: 2025Q1

REPORT INFORMATION
  Report Type: Spontaneous
  Country: US (occurrence: US)
  Receive Date: 20250206
  Receipt Date: 20250225
  Transmission Date: 20250408
  Serious: Yes (Hospitalization, Other)
  Sender: BRISTOL-MYERS SQUIBB COMPANY
  Company Number: US-BRISTOL-MYERS SQUIBB COMPANY-2025-016928

PATIENT
  Age: 66 Year
  Sex: Male
  Weight: 122.47 kg

DRUGS (2)
  1. POMALYST [Suspect]
     Active Substance: POMALIDOMIDE
     Indication: Plasma cell myeloma
     Dosage: 1 CAPSULE DAILY FOR 21 DAYS, THEN 7 DAYS OFF
     Route: 048
     Dates: start: 20241205
  2. XPOVIO [Concomitant]
     Active Substance: SELINEXOR
     Indication: Product used for unknown indication
     Dosage: ONCE WEEKLY

REACTIONS (1)
  - Pneumonia [Unknown]
